FAERS Safety Report 9884700 (Version 1)
Quarter: 2014Q1

REPORT INFORMATION
  Report Type: Spontaneous
  Country: US (occurrence: US)
  Receive Date: 20140210
  Receipt Date: 20140210
  Transmission Date: 20141002
  Serious: No
  Sender: FDA-Public Use
  Company Number: US-ALLERGAN-1400017US

PATIENT
  Sex: Female

DRUGS (2)
  1. BOTOX COSMETIC [Suspect]
     Indication: SKIN WRINKLING
     Dosage: 4 UNITS, SINGLE
     Route: 030
     Dates: start: 20131231, end: 20131231
  2. CELEXA                             /00582602/ [Concomitant]
     Indication: DEPRESSION
     Dosage: 10 MG, QHS
     Route: 048

REACTIONS (1)
  - Injection site pain [Recovered/Resolved]
